FAERS Safety Report 5718734-5 (Version None)
Quarter: 2008Q2

REPORT INFORMATION
  Report Type: 
  Country: None (occurrence: None)
  Receive Date: 20080425
  Receipt Date: 20080415
  Transmission Date: 20081010
  Serious: Yes (Other)
  Sender: FDA-Public Use
  Company Number: GB-PFIZER INC-2008034196

PATIENT

DRUGS (1)
  1. SERTRALINE [Suspect]

REACTIONS (5)
  - CONVULSION [None]
  - DRUG EXPOSURE DURING PREGNANCY [None]
  - EYE ROLLING [None]
  - MUSCLE TWITCHING [None]
  - SMALL FOR DATES BABY [None]
